FAERS Safety Report 6139406-1 (Version None)
Quarter: 2009Q2

REPORT INFORMATION
  Report Type: 
  Country: None (occurrence: None)
  Receive Date: 20090401
  Receipt Date: 20090320
  Transmission Date: 20091009
  Serious: Yes (Other)
  Sender: FDA-Public Use
  Company Number: FR-ROCHE-619764

PATIENT
  Sex: Female
  Weight: 51 kg

DRUGS (5)
  1. BONIVA [Suspect]
     Indication: OSTEOPOROSIS
     Dosage: FIRST INJECTION AT A DOSE OF 3MG/3ML
     Route: 042
     Dates: start: 20080501
  2. BONIVA [Suspect]
     Route: 042
     Dates: start: 20090301
  3. OROCAL D3 [Concomitant]
  4. PIASCLEDINE [Concomitant]
  5. KETOPROFEN [Concomitant]

REACTIONS (3)
  - HEADACHE [None]
  - PAIN OF SKIN [None]
  - POLYMYALGIA RHEUMATICA [None]
